FAERS Safety Report 9673201 (Version 1)
Quarter: 2013Q4

REPORT INFORMATION
  Report Type: Spontaneous
  Country: US (occurrence: US)
  Receive Date: 20131106
  Receipt Date: 20131106
  Transmission Date: 20140711
  Serious: No
  Sender: FDA-Public Use
  Company Number: US-AMGEN-USASP2013072866

PATIENT
  Age: 49 Year
  Sex: Male
  Weight: 136.5 kg

DRUGS (5)
  1. ENBREL [Suspect]
     Indication: PRODUCT USED FOR UNKNOWN INDICATION
     Dosage: 50 MG, QWK
     Route: 058
  2. MELOXICAM [Concomitant]
     Dosage: 7.5 MG, UNK
  3. OMEPRAZOLE [Concomitant]
     Dosage: 10 MG, UNK
  4. VECTICAL [Concomitant]
     Dosage: 3 MCG/GM
  5. LEVOTHROID [Concomitant]
     Dosage: 25 MCG

REACTIONS (4)
  - Pruritus [Unknown]
  - Infection [Unknown]
  - Tinea pedis [Unknown]
  - Psoriasis [Unknown]
